FAERS Safety Report 5393609-2 (Version None)
Quarter: 2007Q3

REPORT INFORMATION
  Report Type: 
  Country: None (occurrence: None)
  Receive Date: 20070723
  Receipt Date: 20070717
  Transmission Date: 20080115
  Serious: Yes (Death, Life-Threatening)
  Sender: FDA-Public Use
  Company Number: JP-NOVOPROD-265717

PATIENT
  Age: 82 Year
  Sex: Male
  Weight: 60 kg

DRUGS (1)
  1. NOVOSEVEN [Suspect]
     Dosage: 4.8 MG, UNK
     Route: 042
     Dates: start: 20070605, end: 20070715

REACTIONS (1)
  - SHOCK HAEMORRHAGIC [None]
